FAERS Safety Report 4279168-6 (Version None)
Quarter: 2004Q1

REPORT INFORMATION
  Report Type: 
  Country: None (occurrence: None)
  Receive Date: 20040123
  Receipt Date: 20040123
  Transmission Date: 20041129
  Serious: No
  Sender: FDA-Public Use
  Company Number: None

PATIENT
  Age: 52 Year
  Sex: Female
  Weight: 79.0166 kg

DRUGS (12)
  1. INTERLEUKIN 2 CHIRON [Suspect]
     Indication: METASTATIC MALIGNANT MELANOMA
     Dosage: 600.00 IU/K Q 8 HR INTRAVENOUS
     Route: 042
     Dates: start: 20031012, end: 20040114
  2. OXYCODONE HCL [Concomitant]
  3. CLONAZEPAM [Concomitant]
  4. LOVENOX [Concomitant]
  5. CIMETIDINE HCL [Concomitant]
  6. WARFARIN SODIUM [Concomitant]
  7. CETIRIZINE HCL [Concomitant]
  8. MAGNESIUM OXIDE [Concomitant]
  9. FAMOTIDINE [Concomitant]
  10. NEURONTIN [Concomitant]
  11. PREMARIN [Concomitant]
  12. PAXIL [Concomitant]

REACTIONS (10)
  - BALANCE DISORDER [None]
  - CEREBELLAR INFARCTION [None]
  - CEREBRAL INFARCTION [None]
  - CEREBRAL ISCHAEMIA [None]
  - CONFUSIONAL STATE [None]
  - DIZZINESS [None]
  - ENCEPHALOPATHY [None]
  - FATIGUE [None]
  - HEADACHE [None]
  - HYPOTENSION [None]
